FAERS Safety Report 9666327 (Version 1)
Quarter: 2013Q4

REPORT INFORMATION
  Report Type: Spontaneous
  Country: IT (occurrence: IT)
  Receive Date: 20131104
  Receipt Date: 20131104
  Transmission Date: 20140711
  Serious: Yes (Other)
  Sender: FDA-Public Use
  Company Number: IT-BRISTOL-MYERS SQUIBB COMPANY-19646371

PATIENT
  Age: 86 Year
  Sex: Female

DRUGS (8)
  1. BRUFEN [Suspect]
     Indication: PAIN IN EXTREMITY
     Route: 048
     Dates: start: 20131001, end: 20131011
  2. ENALAPRIL [Concomitant]
     Route: 048
  3. ZYLORIC [Concomitant]
     Dosage: 300 MG TABS
     Route: 048
  4. EUTIROX [Concomitant]
     Dosage: 100 MCG TABS
     Route: 048
  5. LASIX [Concomitant]
     Dosage: 25 MG TABS
     Route: 048
  6. LANOXIN [Concomitant]
     Dosage: 0.125 MG TABS
     Route: 048
  7. COUMADIN TABS 5 MG [Suspect]
     Indication: ATRIAL FIBRILLATION
     Route: 048
     Dates: start: 20130101, end: 20131011
  8. CO-EFFERALGAN [Suspect]
     Indication: PAIN IN EXTREMITY
     Dosage: 500+30 MG TABS
     Route: 048
     Dates: start: 20131001, end: 20131011

REACTIONS (2)
  - Blood pressure increased [Recovered/Resolved]
  - International normalised ratio increased [Recovered/Resolved]
